FAERS Safety Report 9309958 (Version 3)
Quarter: 2014Q2

REPORT INFORMATION
  Report Type: Spontaneous
  Country: US (occurrence: US)
  Receive Date: 20130527
  Receipt Date: 20140402
  Transmission Date: 20141212
  Serious: Yes (Other)
  Sender: FDA-Public Use
  Company Number: US-AMGEN-USASP2013036781

PATIENT
  Age: 70 Year
  Sex: Female

DRUGS (9)
  1. PROLIA [Suspect]
     Indication: OSTEOPOROSIS POSTMENOPAUSAL
     Dosage: UNK
     Route: 065
     Dates: start: 2012
  2. CALCIUM [Concomitant]
     Dosage: UNK UNK, QD
  3. VITAMIN D [Concomitant]
     Dosage: UNK UNK, QD
  4. METANX [Concomitant]
     Dosage: UNK, QD
  5. FLU [Concomitant]
  6. SYNTHROID [Concomitant]
  7. ESTROGEN [Concomitant]
     Dosage: 1 G, QD
  8. NEURONTIN [Concomitant]
     Dosage: 600 MG, QD 1 AT NIGHT
  9. CYCLOBENZAPRINE [Concomitant]
     Dosage: 10 MG, QD 1 AT NIGHT

REACTIONS (11)
  - Impaired healing [Not Recovered/Not Resolved]
  - Muscle rupture [Unknown]
  - Pain [Unknown]
  - Feeling cold [Not Recovered/Not Resolved]
  - Chills [Not Recovered/Not Resolved]
  - Nausea [Not Recovered/Not Resolved]
  - Headache [Not Recovered/Not Resolved]
  - Joint crepitation [Unknown]
  - Gait disturbance [Unknown]
  - Arthralgia [Unknown]
  - Pain in extremity [Unknown]
